FAERS Safety Report 18379679 (Version 2)
Quarter: 2020Q4

REPORT INFORMATION
  Report Type: Report from Study
  Country: US (occurrence: US)
  Receive Date: 20201014
  Receipt Date: 20201027
  Transmission Date: 20210114
  Serious: No
  Sender: FDA-Public Use
  Company Number: US-SA-2020SA279302

PATIENT

DRUGS (1)
  1. SARILUMAB [Suspect]
     Active Substance: SARILUMAB
     Indication: RHEUMATOID ARTHRITIS
     Dosage: 200 MG, QOW
     Route: 058

REACTIONS (2)
  - Product preparation error [Unknown]
  - Hypoaesthesia oral [Unknown]

NARRATIVE: CASE EVENT DATE: 20201014
